FAERS Safety Report 18457808 (Version 2)
Quarter: 2020Q4

REPORT INFORMATION
  Report Type: Report from Study
  Country: US (occurrence: US)
  Receive Date: 20201103
  Receipt Date: 20201105
  Transmission Date: 20210114
  Serious: Yes (Hospitalization)
  Sender: FDA-Public Use
  Company Number: US-009507513-2010USA003193

PATIENT
  Age: 69 Year
  Sex: Male
  Weight: 88.5 kg

DRUGS (17)
  1. COZAAR [Concomitant]
     Active Substance: LOSARTAN POTASSIUM
     Indication: HYPERTENSION
     Dosage: 100 MILLIGRAM, QD
     Route: 048
     Dates: start: 20200825
  2. PEMBROLIZUMAB. [Suspect]
     Active Substance: PEMBROLIZUMAB
     Indication: MALIGNANT MELANOMA
     Dosage: 200 MILLIGRAM, Q3W
     Route: 042
     Dates: start: 202010
  3. CENTRUM MEN 50 PLUS [Concomitant]
     Active Substance: MINERALS\VITAMINS
     Indication: ROUTINE HEALTH MAINTENANCE
     Dosage: 1 TABLET, QD
     Route: 048
     Dates: start: 201701
  4. VITAMIN E [Concomitant]
     Active Substance: .ALPHA.-TOCOPHEROL
     Indication: ROUTINE HEALTH MAINTENANCE
     Dosage: 200 U, QD
     Route: 048
     Dates: start: 201701
  5. CANCER HUIL-12 TRANGENE RECOMBINANT VECTOR VACCINE (NEWCASTLE DISEASE [V-938] [Suspect]
     Active Substance: INVESTIGATIONAL PRODUCT
     Indication: MALIGNANT MELANOMA
     Route: 036
     Dates: start: 20200929
  6. HYDROCORTISONE. [Concomitant]
     Active Substance: HYDROCORTISONE
     Indication: ADRENAL INSUFFICIENCY
     Dosage: 25 MILLIGRAM, QD
     Route: 048
     Dates: start: 20200407
  7. UBIDECARENONE. [Concomitant]
     Active Substance: UBIDECARENONE
     Indication: ROUTINE HEALTH MAINTENANCE
     Dosage: 300 MILLIGRAM, QD
     Route: 048
     Dates: start: 201801
  8. HEALTH AID CALMAGZINC [Concomitant]
     Indication: ROUTINE HEALTH MAINTENANCE
     Dosage: 1 TABLET, QD
     Route: 048
     Dates: start: 201801
  9. CANCER HUIL-12 TRANGENE RECOMBINANT VECTOR VACCINE (NEWCASTLE DISEASE [V-938] [Suspect]
     Active Substance: INVESTIGATIONAL PRODUCT
     Route: 036
     Dates: start: 20201002
  10. GRAPE SEEDS [Concomitant]
     Indication: ROUTINE HEALTH MAINTENANCE
     Dosage: 1 CAPSULE, QD
     Route: 048
     Dates: start: 201801
  11. CANCER HUIL-12 TRANGENE RECOMBINANT VECTOR VACCINE (NEWCASTLE DISEASE [V-938] [Suspect]
     Active Substance: INVESTIGATIONAL PRODUCT
     Route: 036
     Dates: start: 20201001
  12. MINERALS (UNSPECIFIED) (+) VITAMINS (UNSPECIFIED) [Concomitant]
     Active Substance: MINERALS\VITAMINS
     Indication: ROUTINE HEALTH MAINTENANCE
     Dosage: UNK
     Route: 048
     Dates: start: 201701
  13. ENOXAPARIN SODIUM. [Concomitant]
     Active Substance: ENOXAPARIN SODIUM
     Indication: PULMONARY EMBOLISM
     Dosage: 100 MG DAILY
     Route: 058
     Dates: start: 20200916
  14. CANCER HUIL-12 TRANGENE RECOMBINANT VECTOR VACCINE (NEWCASTLE DISEASE [V-938] [Suspect]
     Active Substance: INVESTIGATIONAL PRODUCT
     Route: 036
     Dates: start: 20201006
  15. LEVOTHYROXINE SODIUM. [Concomitant]
     Active Substance: LEVOTHYROXINE SODIUM
     Indication: HYPOTHYROIDISM
     Dosage: 100 MICROGRAM, QD
     Route: 048
     Dates: start: 20200407
  16. LOVAZA [Concomitant]
     Active Substance: OMEGA-3-ACID ETHYL ESTERS
     Indication: ROUTINE HEALTH MAINTENANCE
     Dosage: 1 GRAM DAILY
     Route: 048
     Dates: start: 201701
  17. CB COMPLEX [Concomitant]
     Active Substance: ASCORBIC ACID\VITAMIN B COMPLEX
     Indication: ROUTINE HEALTH MAINTENANCE
     Dosage: UNK, QD
     Route: 048
     Dates: start: 201701

REACTIONS (2)
  - Unevaluable event [Recovered/Resolved]
  - Cytokine release syndrome [Recovered/Resolved]

NARRATIVE: CASE EVENT DATE: 20201006
